FAERS Safety Report 7738001-8 (Version None)
Quarter: 2011Q3

REPORT INFORMATION
  Report Type: 
  Country: None (occurrence: None)
  Receive Date: 20110908
  Receipt Date: 20110829
  Transmission Date: 20111222
  Serious: Yes (Hospitalization)
  Sender: FDA-Public Use
  Company Number: US-BAYER-201031322NA

PATIENT
  Age: 41 Year
  Sex: Female
  Weight: 77.273 kg

DRUGS (33)
  1. CALCIUM CARBONATE [Concomitant]
     Dosage: 1200 MG + D 500
     Route: 048
  2. CIPROFLOXACIN [Concomitant]
     Dosage: 750 MG
  3. FENTANYL-100 [Concomitant]
  4. DROSPIRENONE AND ETHINYL ESTRADIOL [Suspect]
     Indication: MENORRHAGIA
     Dates: start: 20000101, end: 20100101
  5. REGLAN [Concomitant]
     Route: 042
  6. FLOVENT HFA [Concomitant]
     Dosage: 110 MCG
     Route: 055
  7. KLONOPIN [Concomitant]
     Dosage: 1 BID PRN
     Route: 048
  8. MAXAIR [Concomitant]
     Dosage: Q4-6 H
     Route: 055
  9. ALLEGRA D 24 HOUR [Concomitant]
     Indication: MULTIPLE ALLERGIES
  10. HYDRATION NOS [Concomitant]
     Route: 042
  11. TORADOL [Concomitant]
     Route: 030
  12. YASMIN [Suspect]
     Indication: MENORRHAGIA
     Dates: start: 20000101, end: 20100101
  13. SINGULAIR [Concomitant]
     Indication: MULTIPLE ALLERGIES
  14. DEMEROL [Concomitant]
     Route: 042
  15. TRICOR [Concomitant]
     Indication: BLOOD TRIGLYCERIDES ABNORMAL
     Route: 048
  16. WELLBUTRIN XL [Concomitant]
     Indication: DEPRESSION
     Dosage: ER 300 MG
     Route: 048
  17. FLONASE [Concomitant]
     Indication: SEASONAL ALLERGY
     Route: 045
  18. SKELAXIN [Concomitant]
     Indication: BACK PAIN
  19. IBUPROFEN [Concomitant]
     Indication: BACK PAIN
  20. TORADOL [Concomitant]
     Route: 042
  21. MAXAIR [Concomitant]
     Indication: ASTHMA
     Route: 055
  22. PROZAC [Concomitant]
     Indication: PANIC ATTACK
  23. PEPCID [Concomitant]
     Route: 042
  24. ADVIL LIQUI-GELS [Concomitant]
     Indication: MUSCLE SPASMS
     Dosage: OTC (OVER THE COUNTER)
  25. ACIPHEX [Concomitant]
     Route: 048
  26. LIDODERM [Concomitant]
     Dosage: 5%
     Route: 062
  27. DECADRON [Concomitant]
     Route: 042
  28. YASMIN [Suspect]
     Indication: PREMENSTRUAL SYNDROME
  29. DROSPIRENONE AND ETHINYL ESTRADIOL [Suspect]
     Indication: PREMENSTRUAL SYNDROME
  30. ACIDOPHILUS [Concomitant]
  31. FISH OIL [Concomitant]
     Route: 048
  32. MORPHINE [Concomitant]
  33. ZOFRAN [Concomitant]

REACTIONS (10)
  - ABDOMINAL PAIN UPPER [None]
  - DECREASED APPETITE [None]
  - VOMITING [None]
  - DIZZINESS [None]
  - CHOLELITHIASIS [None]
  - CHOLECYSTITIS ACUTE [None]
  - ABDOMINAL PAIN [None]
  - CHOLECYSTITIS CHRONIC [None]
  - DIARRHOEA [None]
  - PYREXIA [None]
